FAERS Safety Report 9651829 (Version 2)
Quarter: 2013Q4

REPORT INFORMATION
  Report Type: Report from Study
  Country: US (occurrence: US)
  Receive Date: 20131029
  Receipt Date: 20131029
  Transmission Date: 20140711
  Serious: Yes (Hospitalization)
  Sender: FDA-Public Use
  Company Number: PHEH2013US018078

PATIENT
  Age: 48 Year
  Sex: Female
  Weight: 78.2 kg

DRUGS (16)
  1. GILENYA [Suspect]
     Indication: RELAPSING-REMITTING MULTIPLE SCLEROSIS
     Dosage: 0.5 MG, QD
     Route: 048
     Dates: start: 20130823
  2. VESICARE [Concomitant]
     Dosage: 10 MG, QD
     Route: 048
  3. LEVOTHYROXINE [Concomitant]
     Dosage: 50 UG, QD
     Route: 048
  4. ESCITALOPRAM [Concomitant]
     Dosage: 20 MG, QD
     Route: 048
  5. CRESTOR [Concomitant]
     Dosage: 20 MG, QD
     Route: 048
  6. LEXAPRO [Concomitant]
     Dosage: 20 MG, UNK
     Route: 048
  7. VIIBRYD [Concomitant]
     Dosage: 40 MG, QD
     Route: 048
  8. TIZANIDINE [Concomitant]
     Dosage: 1 DF, PRN
     Route: 048
  9. OMEPRAZOLE [Concomitant]
     Dosage: 20 MG, QD
     Route: 048
  10. LOSARTAN [Concomitant]
     Dosage: 25 MG, BID
     Route: 048
  11. IBUPROFEN [Concomitant]
     Dosage: 800 MG, PRN
     Route: 048
  12. ZOFRAN [Concomitant]
     Route: 042
  13. ACESAL CALCIUM [Concomitant]
  14. VIT D3 [Concomitant]
     Route: 048
  15. VIT D [Concomitant]
     Dosage: 600 MG, UNK
  16. FISH OIL CONCENTRATE [Concomitant]
     Dosage: 1000 MG, UNK
     Route: 048

REACTIONS (9)
  - Cerebrovascular accident [Recovering/Resolving]
  - Cerebral artery occlusion [Recovering/Resolving]
  - Cerebral infarction [Recovering/Resolving]
  - Optic neuritis [Recovering/Resolving]
  - Blindness [Recovering/Resolving]
  - Feeling jittery [Recovered/Resolved]
  - Pain in extremity [Not Recovered/Not Resolved]
  - Cognitive disorder [Recovering/Resolving]
  - Blood pressure increased [Recovered/Resolved]
